FAERS Safety Report 20019097 (Version 1)
Quarter: 2021Q4

REPORT INFORMATION
  Report Type: Spontaneous
  Country: BE (occurrence: BE)
  Receive Date: 20211101
  Receipt Date: 20211101
  Transmission Date: 20220303
  Serious: Yes (Other)
  Sender: FDA-Public Use
  Company Number: BE-SA-200611372GDDC

PATIENT
  Age: 29 Year
  Sex: Male

DRUGS (5)
  1. ATORVASTATIN CALCIUM [Suspect]
     Active Substance: ATORVASTATIN CALCIUM
     Dosage: UNK
  2. RAPAMUNE [Concomitant]
     Active Substance: SIROLIMUS
     Dosage: 1-3 MG PER DAY IN ORDER TO MAINTAIN SERUM TROUGH LEVELS BETWEEN 5 AND 10 NG/ML
  3. METHYLPREDNISOLONE [Concomitant]
     Active Substance: METHYLPREDNISOLONE
     Dosage: 500 MG BOLUS DURING THE OPERATIVE PROCEDURE
     Route: 040
  4. ANTI-THYMOCYTE GLOBULIN (RABBIT) NOS [Concomitant]
     Active Substance: LAPINE T-LYMPHOCYTE IMMUNE GLOBULIN
     Indication: Immunosuppression
     Dosage: 4 MG/KG, DAILY, INDUCTION THERAPY
  5. TACROLIMUS [Concomitant]
     Active Substance: TACROLIMUS
     Indication: Immunosuppression
     Dosage: 0.2 MG/KG, DAILY TO REACH SERUM TROUGH LEVELS BETWEEN 8 AND 12 NG/ML DURING THE FIRST 4 WEEKS AND 5-

REACTIONS (2)
  - Leukopenia [Recovered/Resolved]
  - Mouth ulceration [Recovered/Resolved]

NARRATIVE: CASE EVENT DATE: 20040701
